FAERS Safety Report 17152753 (Version 1)
Quarter: 2019Q4

REPORT INFORMATION
  Report Type: Spontaneous
  Country: US (occurrence: US)
  Receive Date: 20191213
  Receipt Date: 20191213
  Transmission Date: 20200122
  Serious: No
  Sender: FDA-Public Use
  Company Number: US-NOVOPROD-679751

PATIENT
  Age: 67 Year
  Sex: Female

DRUGS (1)
  1. LEVEMIR [Suspect]
     Active Substance: INSULIN DETEMIR
     Indication: TYPE 1 DIABETES MELLITUS
     Dosage: 2 1/2 UNITS 3 TIMES A DAY
     Route: 058
     Dates: start: 20190803, end: 201908

REACTIONS (6)
  - Injection site pain [Not Recovered/Not Resolved]
  - Injection site mass [Unknown]
  - Inappropriate schedule of product administration [Recovered/Resolved]
  - Arthralgia [Not Recovered/Not Resolved]
  - Injection site rash [Unknown]
  - Injection site pruritus [Not Recovered/Not Resolved]

NARRATIVE: CASE EVENT DATE: 20190804
